FAERS Safety Report 6962857-X (Version None)
Quarter: 2010Q3

REPORT INFORMATION
  Report Type: 
  Country: None (occurrence: None)
  Receive Date: 20100831
  Receipt Date: 20100823
  Transmission Date: 20110219
  Serious: Yes (Other)
  Sender: FDA-Public Use
  Company Number: 675826

PATIENT
  Age: 72 Year
  Sex: Female

DRUGS (4)
  1. LEUCOVORIN CALCIUM [Suspect]
     Indication: RECTAL CANCER
     Dates: start: 20100622
  2. FLUOROURACIL [Suspect]
     Indication: NEOPLASM MALIGNANT
     Dates: start: 20100622
  3. ELOXATIN [Suspect]
     Indication: RECTAL CANCER
     Dates: start: 20100622, end: 20100622
  4. AVASTIN [Suspect]
     Indication: RECTAL CANCER
     Dates: start: 20100622

REACTIONS (7)
  - BLOOD PRESSURE DECREASED [None]
  - DYSPNOEA [None]
  - FLUSHING [None]
  - HEART RATE INCREASED [None]
  - INFUSION RELATED REACTION [None]
  - NAUSEA [None]
  - OXYGEN SATURATION DECREASED [None]
